FAERS Safety Report 14961729 (Version 1)
Quarter: 2018Q2

REPORT INFORMATION
  Report Type: Spontaneous
  Country: AU (occurrence: AU)
  Receive Date: 20180601
  Receipt Date: 20180601
  Transmission Date: 20180711
  Serious: Yes (Death, Other)
  Sender: FDA-Public Use
  Company Number: AU-SAMSUNG BIOEPIS-SB-2018-04437

PATIENT
  Sex: Male

DRUGS (1)
  1. INFLIXIMAB [Suspect]
     Active Substance: INFLIXIMAB
     Indication: PRODUCT USED FOR UNKNOWN INDICATION
     Dosage: UNKNOWN, FREQUENCY 1: 3 INJECTION MONTHLY. FREQUENCY 2: .
     Route: 065

REACTIONS (3)
  - Inflammatory bowel disease [Unknown]
  - Chronic lymphocytic leukaemia [Unknown]
  - Pulmonary embolism [Fatal]
